FAERS Safety Report 7894151-7 (Version None)
Quarter: 2011Q4

REPORT INFORMATION
  Report Type: 
  Country: None (occurrence: None)
  Receive Date: 20111104
  Receipt Date: 20111031
  Transmission Date: 20120403
  Serious: Yes (Other)
  Sender: FDA-Public Use
  Company Number: US-PFIZER INC-2011240103

PATIENT
  Sex: Male
  Weight: 74.83 kg

DRUGS (5)
  1. FISH OIL [Concomitant]
     Dosage: UNK
  2. CLINDAMYCIN HCL [Suspect]
     Indication: TOOTH EXTRACTION
     Dosage: UNK
     Dates: end: 20111025
  3. PRAVASTATIN [Concomitant]
     Indication: BLOOD CHOLESTEROL INCREASED
     Dosage: 40 MG, DAILY
  4. MULTI-VITAMINS [Concomitant]
     Dosage: UNK
  5. CLINDAMYCIN HCL [Suspect]
     Indication: ORAL SURGERY
     Dosage: 300 MG, 3X/DAY
     Route: 048
     Dates: start: 20110920, end: 20111025

REACTIONS (3)
  - RASH GENERALISED [None]
  - RASH MORBILLIFORM [None]
  - URTICARIA [None]
